FAERS Safety Report 9363799 (Version 2)
Quarter: 2013Q3

REPORT INFORMATION
  Report Type: Spontaneous
  Country: DE (occurrence: DE)
  Receive Date: 20130624
  Receipt Date: 20130708
  Transmission Date: 20140515
  Serious: Yes (Other)
  Sender: FDA-Public Use
  Company Number: DE-RANBAXY-2013RR-70467

PATIENT
  Age: 17 Year
  Sex: Male

DRUGS (4)
  1. METFORMIN [Suspect]
     Indication: WEIGHT INCREASED
     Dosage: 850 MG, BID
     Route: 065
  2. METHYLPHENIDATE [Suspect]
     Indication: DECREASED ACTIVITY
     Dosage: 10 MG, QD
     Route: 065
  3. L-THYROXINE [Concomitant]
     Indication: HORMONE REPLACEMENT THERAPY
     Dosage: 150 ?G, UNK
     Route: 065
  4. TESTOSTERONE GEL [Concomitant]
     Indication: HORMONE REPLACEMENT THERAPY
     Dosage: 75 MG, UNK
     Route: 065

REACTIONS (3)
  - Grand mal convulsion [Unknown]
  - Gastrointestinal disorder [Unknown]
  - Off label use [Recovered/Resolved]
